FAERS Safety Report 9034586 (Version 1)
Quarter: 2013Q1

REPORT INFORMATION
  Report Type: Spontaneous
  Country: GB (occurrence: None)
  Receive Date: 20130111
  Receipt Date: 20130111
  Transmission Date: 20140127
  Serious: Yes (Other)
  Sender: FDA-Public Use
  Company Number: GER/UKI/13/0027328

PATIENT
  Age: 41 Year
  Sex: Male

DRUGS (2)
  1. TERBINAFINE [Suspect]
     Indication: ONYCHOMYCOSIS
     Route: 048
     Dates: start: 20120903, end: 20121130
  2. PREGABALIN (PREGABALIN) [Concomitant]

REACTIONS (3)
  - Headache [None]
  - Quality of life decreased [None]
  - Mood swings [None]
